FAERS Safety Report 10779894 (Version 1)
Quarter: 2015Q1

REPORT INFORMATION
  Report Type: Spontaneous
  Country: US (occurrence: US)
  Receive Date: 20150210
  Receipt Date: 20150210
  Transmission Date: 20150721
  Serious: Yes (Hospitalization, Other)
  Sender: FDA-Public Use
  Company Number: US-PFIZER INC-2015050077

PATIENT
  Age: 52 Year
  Sex: Female
  Weight: 98 kg

DRUGS (3)
  1. EFFEXOR XR [Suspect]
     Active Substance: VENLAFAXINE HYDROCHLORIDE
     Indication: DEPRESSION
     Dosage: 75 MG, 3X/DAY
     Dates: end: 2014
  2. EFFEXOR XR [Suspect]
     Active Substance: VENLAFAXINE HYDROCHLORIDE
     Dosage: 75 MG, 3X/DAY
  3. WELLBUTRIN [Concomitant]
     Active Substance: BUPROPION HYDROCHLORIDE
     Indication: DEPRESSION
     Dosage: 200 MG, 2X/DAY

REACTIONS (10)
  - Disease progression [Unknown]
  - Amnesia [Unknown]
  - Cardiac arrest [Unknown]
  - Rotator cuff syndrome [Unknown]
  - Cardiac murmur [Unknown]
  - Type 2 diabetes mellitus [Unknown]
  - Overdose [Recovering/Resolving]
  - Dyspnoea [Not Recovered/Not Resolved]
  - Seizure [Unknown]
  - Rotator cuff syndrome [Unknown]

NARRATIVE: CASE EVENT DATE: 2009
